FAERS Safety Report 20922011 (Version 1)
Quarter: 2022Q2

REPORT INFORMATION
  Report Type: Spontaneous
  Country: US (occurrence: US)
  Receive Date: 20220607
  Receipt Date: 20220607
  Transmission Date: 20220721
  Serious: Yes (Disabling, Other)
  Sender: FDA-Public Use
  Company Number: US-NOVOPROD-924410

PATIENT
  Age: 51 Year
  Sex: Female
  Weight: 177.78 kg

DRUGS (1)
  1. OZEMPIC [Suspect]
     Active Substance: SEMAGLUTIDE
     Indication: Weight control
     Dosage: UNK
     Route: 058

REACTIONS (3)
  - Atrial fibrillation [Not Recovered/Not Resolved]
  - Joint injury [Not Recovered/Not Resolved]
  - Off label use [Unknown]
